FAERS Safety Report 12566388 (Version 2)
Quarter: 2016Q3

REPORT INFORMATION
  Report Type: Spontaneous
  Country: DK (occurrence: DK)
  Receive Date: 20160718
  Receipt Date: 20160729
  Transmission Date: 20161109
  Serious: No
  Sender: FDA-Public Use
  Company Number: DK-PFIZER INC-2016342031

PATIENT
  Sex: Female

DRUGS (1)
  1. CHAMPIX [Suspect]
     Active Substance: VARENICLINE TARTRATE
     Indication: SMOKING CESSATION THERAPY
     Dosage: UNK
     Route: 048

REACTIONS (9)
  - Personality change [Unknown]
  - Hot flush [Unknown]
  - Depressed mood [Unknown]
  - Flatulence [Unknown]
  - Weight increased [Unknown]
  - Crying [Unknown]
  - Abdominal pain lower [Unknown]
  - Hormone level abnormal [Unknown]
  - Cough [Unknown]
